FAERS Safety Report 25837039 (Version 2)
Quarter: 2025Q4

REPORT INFORMATION
  Report Type: Spontaneous
  Country: US (occurrence: US)
  Receive Date: 20250923
  Receipt Date: 20251009
  Transmission Date: 20260118
  Serious: Yes (Hospitalization)
  Sender: ANI
  Company Number: US-ANIPHARMA-2025-US-042815

PATIENT
  Age: 80 Year
  Sex: Female

DRUGS (1)
  1. CORTICOTROPIN [Suspect]
     Active Substance: CORTICOTROPIN
     Indication: Multiple sclerosis relapse
     Dosage: 80 UNITS QD X 20 DAYS.
     Route: 058
     Dates: start: 20250821

REACTIONS (6)
  - Drug ineffective [Recovered/Resolved]
  - Chills [Recovering/Resolving]
  - Dysstasia [Recovering/Resolving]
  - Hypoxia [Recovering/Resolving]
  - Lung disorder [Recovering/Resolving]
  - Fluid retention [Recovering/Resolving]

NARRATIVE: CASE EVENT DATE: 20250821
